FAERS Safety Report 11646955 (Version 1)
Quarter: 2015Q4

REPORT INFORMATION
  Report Type: Spontaneous
  Country: PL (occurrence: PL)
  Receive Date: 20151020
  Receipt Date: 20151020
  Transmission Date: 20160304
  Serious: Yes (Other)
  Sender: FDA-Public Use
  Company Number: PL-ASTRAZENECA-2015SF01020

PATIENT
  Age: 72 Year
  Sex: Female

DRUGS (2)
  1. GEFITINIB [Suspect]
     Active Substance: GEFITINIB
     Route: 048
     Dates: start: 201102, end: 201201
  2. GEFITINIB [Suspect]
     Active Substance: GEFITINIB
     Route: 048
     Dates: start: 201011

REACTIONS (3)
  - Malignant neoplasm progression [Unknown]
  - Rash papular [Unknown]
  - Transaminases increased [Unknown]

NARRATIVE: CASE EVENT DATE: 201012
